FAERS Safety Report 10056970 (Version 1)
Quarter: 2014Q2

REPORT INFORMATION
  Report Type: Spontaneous
  Country: US (occurrence: US)
  Receive Date: 20140403
  Receipt Date: 20140403
  Transmission Date: 20141212
  Serious: No
  Sender: FDA-Public Use
  Company Number: US-BAYER-2014-040883

PATIENT
  Age: 60 Year
  Sex: Female
  Weight: 102.49 kg

DRUGS (2)
  1. ALEVE TABLET [Suspect]
     Dosage: 3 DF, QD
     Route: 048
     Dates: start: 20140313
  2. CLARITIN [Concomitant]

REACTIONS (3)
  - Inappropriate schedule of drug administration [None]
  - Inappropriate schedule of drug administration [None]
  - Intentional product misuse [None]
